FAERS Safety Report 25081775 (Version 1)
Quarter: 2025Q1

REPORT INFORMATION
  Report Type: Spontaneous
  Country: AT (occurrence: AT)
  Receive Date: 20250317
  Receipt Date: 20250317
  Transmission Date: 20250408
  Serious: Yes (Other)
  Sender: NOVO NORDISK
  Company Number: AT-NOVOPROD-1331615

PATIENT
  Age: 12 Year
  Sex: Male
  Weight: 90 kg

DRUGS (4)
  1. ESPEROCT [Suspect]
     Active Substance: ANTIHEMOPHILIC FACTOR, HUMAN RECOMBINANT
     Indication: Factor VIII deficiency
     Dosage: 3000 IU, TIW
     Dates: start: 20241028
  2. ESPEROCT [Suspect]
     Active Substance: ANTIHEMOPHILIC FACTOR, HUMAN RECOMBINANT
     Dosage: 3000 IU, TIW
     Dates: start: 20241104, end: 20241104
  3. ESPEROCT [Suspect]
     Active Substance: ANTIHEMOPHILIC FACTOR, HUMAN RECOMBINANT
     Dosage: 3000 IU, TIW
     Dates: start: 20241101
  4. ESPEROCT [Suspect]
     Active Substance: ANTIHEMOPHILIC FACTOR, HUMAN RECOMBINANT
     Dosage: 3000 IU, TIW
     Dates: start: 20241030

REACTIONS (5)
  - Anti-polyethylene glycol antibody present [Recovered/Resolved]
  - Haemorrhagic diathesis [Recovered/Resolved]
  - Subcutaneous haematoma [Recovered/Resolved]
  - Haematoma [Unknown]
  - Drug effect less than expected [Recovered/Resolved]

NARRATIVE: CASE EVENT DATE: 20241001
